FAERS Safety Report 6239827-2 (Version None)
Quarter: 2009Q2

REPORT INFORMATION
  Report Type: 
  Country: None (occurrence: None)
  Receive Date: 20090619
  Receipt Date: 20090619
  Transmission Date: 20091009
  Serious: No
  Sender: FDA-Public Use
  Company Number: None

PATIENT
  Sex: Female

DRUGS (1)
  1. KEPPRA [Suspect]
     Indication: CONVULSION
     Dosage: 500 MG 2X/D ORAL
     Route: 048
     Dates: start: 20090101, end: 20090201

REACTIONS (7)
  - ATAXIA [None]
  - DIPLOPIA [None]
  - DIZZINESS [None]
  - FEELING ABNORMAL [None]
  - MUSCULAR WEAKNESS [None]
  - PARAESTHESIA [None]
  - TACHYCARDIA [None]
